FAERS Safety Report 10302348 (Version 2)
Quarter: 2014Q3

REPORT INFORMATION
  Report Type: Report from Study
  Country: BR (occurrence: BR)
  Receive Date: 20140714
  Receipt Date: 20140808
  Transmission Date: 20150326
  Serious: Yes (Other)
  Sender: FDA-Public Use
  Company Number: PHHY2014BR085727

PATIENT
  Sex: Female
  Weight: 62 kg

DRUGS (11)
  1. OMEGA 3 [Concomitant]
     Active Substance: OMEGA-3 FATTY ACIDS
     Indication: DRY EYE
     Dosage: 1 TABLET, DAILY
     Route: 048
  2. ALPRAZOLAM. [Concomitant]
     Active Substance: ALPRAZOLAM
     Indication: RELAXATION THERAPY
     Dosage: 1 DF (0.5 MG), AT NIGHT
     Route: 048
  3. LINSEED OIL [Concomitant]
     Active Substance: LINSEED OIL
     Indication: DRY EYE
     Dosage: 2 TABLETS, DAILY
     Route: 048
  4. DIOVAN AMLO FIX [Suspect]
     Active Substance: AMLODIPINE\VALSARTAN
     Indication: HYPERTENSION
     Dosage: 1 TABLET (80/5 MG), DAILY
     Route: 048
  5. DIOVAN AMLO FIX [Suspect]
     Active Substance: AMLODIPINE\VALSARTAN
     Dosage: 2 TABLETS (80/5 MG), DAILY
     Route: 048
  6. VYTORIN [Concomitant]
     Active Substance: EZETIMIBE\SIMVASTATIN
     Indication: BLOOD CHOLESTEROL ABNORMAL
     Dosage: 1 DF (20 MG), AT NIGHT AFTER DINNER
     Route: 048
  7. DIOVAN AMLO FIX [Suspect]
     Active Substance: AMLODIPINE\VALSARTAN
     Dosage: 1 TABLET (80/5 MG), DAILY
     Route: 048
  8. VITALUX PLUS [Suspect]
     Active Substance: VITAMINS
     Indication: RETINAL DISORDER
     Dosage: 1 TABLET AFTER BREAKFAST
     Route: 048
     Dates: start: 2005
  9. VITAMIN E [Concomitant]
     Active Substance: .ALPHA.-TOCOPHEROL
     Indication: DRY EYE
     Dosage: UNK
  10. VITALUX PLUS [Suspect]
     Active Substance: VITAMINS
     Indication: RETINAL PIGMENTATION
  11. GLUCOSAMIN CHONDROITIN             /01430901/ [Concomitant]
     Indication: OSTEOARTHRITIS
     Dosage: 1 SACHET (DILUTED IN WATER), DAILY
     Route: 048

REACTIONS (2)
  - Cataract [Recovered/Resolved]
  - Visual impairment [Recovered/Resolved]
